FAERS Safety Report 15296218 (Version 2)
Quarter: 2018Q3

REPORT INFORMATION
  Report Type: Report from Study
  Country: US (occurrence: US)
  Receive Date: 20180820
  Receipt Date: 20180822
  Transmission Date: 20181010
  Serious: No
  Sender: FDA-Public Use
  Company Number: PHEH2018US033277

PATIENT
  Sex: Female

DRUGS (1)
  1. COSENTYX [Suspect]
     Active Substance: SECUKINUMAB
     Indication: PSORIASIS
     Dosage: 150 MG, Q2W (ONCE EVERY OTHER WEEK)
     Route: 058
     Dates: start: 20180301

REACTIONS (9)
  - Psoriasis [Unknown]
  - Off label use [Unknown]
  - Hypoaesthesia [Unknown]
  - Scoliosis [Unknown]
  - Macule [Unknown]
  - Erythema [Unknown]
  - Nervous system disorder [Unknown]
  - Spondylitis [Unknown]
  - Swelling [Unknown]
